FAERS Safety Report 8450186 (Version 5)
Quarter: 2013Q3

REPORT INFORMATION
  Report Type: Spontaneous
  Country: GB (occurrence: None)
  Receive Date: 20120301
  Receipt Date: 20130911
  Transmission Date: 20140515
  Serious: Yes (Hospitalization, Other)
  Sender: FDA-Public Use
  Company Number: GB-023543

PATIENT
  Age: 62 Year
  Sex: Male
  Weight: 60.5 kg

DRUGS (1)
  1. CHLORAMBUCIL [Suspect]
     Indication: CHRONIC LYMPHOCYTIC LEUKAEMIA
     Dosage: 10MGM2 PER DAY (10 MG/M2,1), ORAL
     Route: 048
     Dates: start: 20110308

REACTIONS (3)
  - Empyema [None]
  - Malaise [None]
  - Chest pain [None]
